FAERS Safety Report 9444991 (Version 1)
Quarter: 2013Q3

REPORT INFORMATION
  Report Type: Spontaneous
  Country: US (occurrence: US)
  Receive Date: 20130807
  Receipt Date: 20130807
  Transmission Date: 20140515
  Serious: Yes (Hospitalization)
  Sender: FDA-Public Use
  Company Number: US-B.I. PHARMACEUTICALS,INC./RIDGEFIELD-2013-BI-23071BP

PATIENT
  Age: 46 Year
  Sex: Female

DRUGS (1)
  1. MICARDIS HCT TABLETS [Suspect]
     Dosage: STRENGTH: 80 MG / 12.5 MG; DAILY DOSE: 80 MG/ 12.5 MG
     Route: 048

REACTIONS (1)
  - Pneumothorax [Unknown]
